FAERS Safety Report 6720705-7 (Version None)
Quarter: 2010Q2

REPORT INFORMATION
  Report Type: 
  Country: None (occurrence: None)
  Receive Date: 20100510
  Receipt Date: 20100429
  Transmission Date: 20101027
  Serious: Yes (Death)
  Sender: FDA-Public Use
  Company Number: 2010AL001819

PATIENT
  Age: 42 Year
  Sex: Male

DRUGS (4)
  1. PHENYTOIN [Suspect]
  2. FLUCONAZOLE [Concomitant]
  3. METRONIDAZOLE [Concomitant]
  4. CIPROFLOXACIN [Concomitant]

REACTIONS (20)
  - BILIARY TRACT DISORDER [None]
  - BRAIN ABSCESS [None]
  - BRAIN HERNIATION [None]
  - BRAIN OEDEMA [None]
  - HEPATIC CONGESTION [None]
  - HEPATIC ENCEPHALOPATHY [None]
  - HEPATIC FAILURE [None]
  - HEPATIC NECROSIS [None]
  - HEPATITIS ACUTE [None]
  - HYDROCEPHALUS [None]
  - IDIOSYNCRATIC DRUG REACTION [None]
  - LEARNING DISORDER [None]
  - LUNG CONSOLIDATION [None]
  - MASTOID ABSCESS [None]
  - MASTOIDITIS [None]
  - NERVOUS SYSTEM DISORDER [None]
  - OTITIS MEDIA [None]
  - PULMONARY CONGESTION [None]
  - PULMONARY OEDEMA [None]
  - TONSILLAR DISORDER [None]
